FAERS Safety Report 8051009-0 (Version None)
Quarter: 2012Q1

REPORT INFORMATION
  Report Type: 
  Country: None (occurrence: None)
  Receive Date: 20120117
  Receipt Date: 20120111
  Transmission Date: 20120608
  Serious: Yes (Death, Hospitalization, Other)
  Sender: FDA-Public Use
  Company Number: PHHY2011IL92173

PATIENT
  Age: 33 Year
  Sex: Female
  Weight: 62 kg

DRUGS (5)
  1. VITAMIN B-12 [Concomitant]
  2. SANDOSTATIN [Suspect]
     Indication: CARCINOID TUMOUR
     Route: 058
  3. CORTISONE ACETATE [Concomitant]
     Dosage: 5 MG, UNK
  4. CABERGOLINE [Concomitant]
  5. SANDOSTATIN LAR [Suspect]
     Indication: CARCINOID TUMOUR
     Dosage: 30 MG, EVERY 28 DAYS
     Dates: start: 20111017

REACTIONS (9)
  - HEPATIC FAILURE [None]
  - DRUG INEFFECTIVE [None]
  - MATERNAL EXPOSURE DURING PREGNANCY [None]
  - NORMAL NEWBORN [None]
  - HEPATOMEGALY [None]
  - VOMITING [None]
  - DECREASED APPETITE [None]
  - PAIN [None]
  - NEOPLASM PROGRESSION [None]
